FAERS Safety Report 5580693-6 (Version None)
Quarter: 2008Q1

REPORT INFORMATION
  Report Type: 
  Country: None (occurrence: None)
  Receive Date: 20080103
  Receipt Date: 20071225
  Transmission Date: 20080703
  Serious: Yes (Other)
  Sender: FDA-Public Use
  Company Number: NL-PFIZER INC-2007108256

PATIENT
  Sex: Male

DRUGS (2)
  1. ESTRAMUSTINE PHOSPHATE SODIUM CAPSULE [Suspect]
     Indication: PROSTATIC SPECIFIC ANTIGEN INCREASED
     Dosage: FREQ:TWICE A DAY
     Route: 048
  2. ALL OTHER THERAPEUTIC PRODUCTS [Concomitant]

REACTIONS (4)
  - AGEUSIA [None]
  - ANOREXIA [None]
  - FEELING COLD [None]
  - MALAISE [None]
